FAERS Safety Report 15188085 (Version 3)
Quarter: 2018Q3

REPORT INFORMATION
  Report Type: Report from Study
  Country: AT (occurrence: AT)
  Receive Date: 20180724
  Receipt Date: 20180920
  Transmission Date: 20181010
  Serious: Yes (Hospitalization, Other)
  Sender: FDA-Public Use
  Company Number: AT-ROCHE-2144431

PATIENT
  Age: 71 Year
  Weight: 78 kg

DRUGS (10)
  1. ZELBORAF [Suspect]
     Active Substance: VEMURAFENIB
     Indication: MALIGNANT MELANOMA
     Dosage: 4?0?4
     Route: 048
     Dates: start: 20180323
  2. COTELLIC [Suspect]
     Active Substance: COBIMETINIB
     Indication: MALIGNANT MELANOMA
     Dosage: 3?0?0
     Route: 048
     Dates: start: 20180323
  3. COTELLIC [Suspect]
     Active Substance: COBIMETINIB
     Dosage: 2?0?0
     Route: 048
     Dates: start: 20180720
  4. COTELLIC [Suspect]
     Active Substance: COBIMETINIB
     Dosage: 3?0?0
     Route: 048
     Dates: start: 20180426
  5. ZELBORAF [Suspect]
     Active Substance: VEMURAFENIB
     Dosage: 4?0?4
     Route: 048
     Dates: start: 20180426
  6. COTELLIC [Suspect]
     Active Substance: COBIMETINIB
     Dosage: 3?0?0
     Route: 048
     Dates: start: 20180518, end: 20180719
  7. ZELBORAF [Suspect]
     Active Substance: VEMURAFENIB
     Dosage: 4?0?0
     Route: 048
     Dates: start: 20180518, end: 20180719
  8. ZELBORAF [Suspect]
     Active Substance: VEMURAFENIB
     Dosage: 3?0?3
     Route: 048
     Dates: start: 20180720
  9. KALIORAL (AUSTRIA) [Concomitant]
     Dosage: 1?0?1
     Route: 048
  10. AMOXICOMP [Concomitant]
     Dosage: 1?0?1
     Route: 048

REACTIONS (12)
  - Diarrhoea [Recovered/Resolved]
  - General physical health deterioration [Not Recovered/Not Resolved]
  - Status epilepticus [Not Recovered/Not Resolved]
  - Vertigo [Recovering/Resolving]
  - Dizziness [Recovered/Resolved]
  - Oedema peripheral [Recovered/Resolved]
  - Asthenia [Recovered/Resolved]
  - Epilepsy [Recovered/Resolved]
  - Pyrexia [Recovered/Resolved]
  - Epilepsy [Unknown]
  - Nausea [Unknown]
  - General physical health deterioration [Unknown]

NARRATIVE: CASE EVENT DATE: 20180429
